FAERS Safety Report 14387749 (Version 1)
Quarter: 2018Q1

REPORT INFORMATION
  Report Type: Spontaneous
  Country: US (occurrence: US)
  Receive Date: 20180115
  Receipt Date: 20180115
  Transmission Date: 20180509
  Serious: Yes (Other)
  Sender: FDA-Public Use
  Company Number: US-SA-2017SA189256

PATIENT
  Age: 68 Year
  Sex: Female
  Weight: 49.89 kg

DRUGS (14)
  1. ASA [Concomitant]
     Active Substance: ASPIRIN
  2. TAXOTERE [Suspect]
     Active Substance: DOCETAXEL
     Indication: LEIOMYOSARCOMA
     Route: 051
     Dates: start: 20130716, end: 20130716
  3. TAXOTERE [Suspect]
     Active Substance: DOCETAXEL
     Indication: LEIOMYOSARCOMA
     Route: 051
     Dates: start: 20151010, end: 20151010
  4. TAXOTERE [Suspect]
     Active Substance: DOCETAXEL
     Indication: LEIOMYOSARCOMA
     Route: 051
     Dates: start: 20140922, end: 20140922
  5. TAXOTERE [Suspect]
     Active Substance: DOCETAXEL
     Indication: LEIOMYOSARCOMA
     Route: 051
     Dates: start: 20141125, end: 20141125
  6. GEMZAR [Concomitant]
     Active Substance: GEMCITABINE HYDROCHLORIDE
  7. SIMVASTATIN. [Concomitant]
     Active Substance: SIMVASTATIN
  8. FISH OIL [Concomitant]
     Active Substance: FISH OIL
  9. VITAMIN D/CALCIUM [Concomitant]
  10. LOSARTAN. [Concomitant]
     Active Substance: LOSARTAN
  11. BRIMONIDINE [Concomitant]
     Active Substance: BRIMONIDINE TARTRATE
  12. TAXOTERE [Suspect]
     Active Substance: DOCETAXEL
     Indication: LEIOMYOSARCOMA
     Route: 051
     Dates: start: 20131010, end: 20131010
  13. TIMOLOL. [Concomitant]
     Active Substance: TIMOLOL
  14. PHENAZOPYRIDINE. [Concomitant]
     Active Substance: PHENAZOPYRIDINE

REACTIONS (2)
  - Alopecia [Not Recovered/Not Resolved]
  - Psychological trauma [Unknown]

NARRATIVE: CASE EVENT DATE: 201404
